FAERS Safety Report 14920380 (Version 1)
Quarter: 2018Q2

REPORT INFORMATION
  Report Type: Spontaneous
  Country: CZ (occurrence: CZ)
  Receive Date: 20180521
  Receipt Date: 20180521
  Transmission Date: 20180711
  Serious: Yes (Death, Life-Threatening, Hospitalization)
  Sender: FDA-Public Use
  Company Number: CZ-PFIZER INC-2018204120

PATIENT
  Age: 58 Year
  Sex: Male

DRUGS (7)
  1. MEGESTROL ACETATE. [Suspect]
     Active Substance: MEGESTROL ACETATE
     Indication: CACHEXIA
     Dosage: 400 MG, 2X/DAY
     Route: 048
     Dates: start: 20131128
  2. ZOLEDRONIC ACID [Suspect]
     Active Substance: ZOLEDRONIC ACID
     Dosage: UNK
     Route: 065
  3. ETHAMSYLATE [Concomitant]
     Active Substance: ETHAMSYLATE
     Indication: ULCER HAEMORRHAGE
     Dosage: 500 MG, TID
     Route: 048
     Dates: start: 20131219
  4. DABRAFENIB [Suspect]
     Active Substance: DABRAFENIB
     Indication: METASTATIC MALIGNANT MELANOMA
     Dosage: 150 MG, BID
     Route: 048
     Dates: start: 20131220, end: 20140411
  5. FENTANYL. [Suspect]
     Active Substance: FENTANYL
     Indication: PAIN
     Dosage: 25 MG, UNK
     Route: 065
     Dates: start: 20131129
  6. TRAMETINIB [Suspect]
     Active Substance: TRAMETINIB
     Indication: METASTATIC MALIGNANT MELANOMA
     Dosage: 2 MG, QD
     Route: 048
     Dates: start: 20131220, end: 20140111
  7. OMEPRAZOLE. [Concomitant]
     Active Substance: OMEPRAZOLE
     Indication: GASTRIC ULCER
     Dosage: 20 MG, BID
     Route: 048
     Dates: start: 20131129, end: 20131129

REACTIONS (10)
  - Fungal infection [Fatal]
  - Pneumonia [Fatal]
  - Pyrexia [Fatal]
  - Anaemia [Fatal]
  - Leukopenia [Fatal]
  - Disease progression [Fatal]
  - C-reactive protein increased [Fatal]
  - Dysphagia [Fatal]
  - Poor venous access [Fatal]
  - Mucosal inflammation [Fatal]

NARRATIVE: CASE EVENT DATE: 20140111
